FAERS Safety Report 22343712 (Version 1)
Quarter: 2023Q2

REPORT INFORMATION
  Report Type: Spontaneous
  Country: US (occurrence: US)
  Receive Date: 20230519
  Receipt Date: 20230519
  Transmission Date: 20230721
  Serious: No
  Sender: FDA-Public Use
  Company Number: US-SA-SAC20230516000566

PATIENT
  Sex: Female
  Weight: 77.098 kg

DRUGS (1)
  1. DUPIXENT [Suspect]
     Active Substance: DUPILUMAB
     Indication: Eczema
     Dosage: UNK

REACTIONS (11)
  - Eye disorder [Unknown]
  - Insomnia [Unknown]
  - Conjunctivitis [Unknown]
  - Hypersensitivity [Unknown]
  - Eczema [Unknown]
  - Skin burning sensation [Unknown]
  - Scar [Unknown]
  - Pruritus [Unknown]
  - Pain of skin [Unknown]
  - Dermatitis [Unknown]
  - Drug effect less than expected [Unknown]
